FAERS Safety Report 21503683 (Version 3)
Quarter: 2022Q4

REPORT INFORMATION
  Report Type: Report from Study
  Country: US (occurrence: US)
  Receive Date: 20221025
  Receipt Date: 20221203
  Transmission Date: 20230113
  Serious: Yes (Hospitalization)
  Sender: FDA-Public Use
  Company Number: US-ABBVIE-4172318

PATIENT
  Sex: Female

DRUGS (1)
  1. IMBRUVICA [Suspect]
     Active Substance: IBRUTINIB
     Indication: Chronic lymphocytic leukaemia
     Dosage: TIME INTERVAL: 0.33333333 DAYS: FORM STRENGTH: 140 MILLIGRAMS?420MG DAILY
     Route: 048
     Dates: start: 20210604, end: 2022

REACTIONS (5)
  - Head injury [Unknown]
  - Fall [Unknown]
  - Pain [Unknown]
  - Decreased appetite [Unknown]
  - Malaise [Unknown]
